FAERS Safety Report 9437315 (Version 1)
Quarter: 2013Q3

REPORT INFORMATION
  Report Type: Spontaneous
  Country: IT (occurrence: IT)
  Receive Date: 20130802
  Receipt Date: 20130802
  Transmission Date: 20140515
  Serious: Yes (Other)
  Sender: FDA-Public Use
  Company Number: IT-TEVA-420801ISR

PATIENT
  Age: 57 Year
  Sex: Female
  Weight: 78 kg

DRUGS (2)
  1. OXALIPLATINO TEVA [Suspect]
     Indication: COLON CANCER
     Dosage: 160.7 MILLIGRAM DAILY; CONCENTRATE FOR INJECTABLE SOLUTION
     Route: 042
     Dates: start: 20121119
  2. FLUOROURACILE TEVA [Suspect]
     Indication: COLON CANCER
     Dosage: 1418 MILLIGRAM DAILY; CONCENTRATE FOR INJECTABLE SOLUTION
     Route: 042
     Dates: start: 20121119

REACTIONS (5)
  - Formication [Recovered/Resolved]
  - Paraesthesia [Recovered/Resolved]
  - Paraesthesia oral [Recovered/Resolved]
  - Swollen tongue [Recovered/Resolved]
  - Formication [Recovered/Resolved]
